FAERS Safety Report 6458978-0 (Version None)
Quarter: 2009Q4

REPORT INFORMATION
  Report Type: 
  Country: None (occurrence: None)
  Receive Date: 20091125
  Receipt Date: 20091125
  Transmission Date: 20100525
  Serious: No
  Sender: FDA-Public Use
  Company Number: None

PATIENT
  Sex: Female
  Weight: 56.6996 kg

DRUGS (1)
  1. VESICARE [Suspect]
     Indication: INCONTINENCE
     Dosage: 1 PER DAY MOUTH
     Route: 048

REACTIONS (4)
  - ALOPECIA [None]
  - DRY SKIN [None]
  - HAIR TEXTURE ABNORMAL [None]
  - TRICHORRHEXIS [None]
